FAERS Safety Report 13133630 (Version 1)
Quarter: 2017Q1

REPORT INFORMATION
  Report Type: Spontaneous
  Country: US (occurrence: US)
  Receive Date: 20170120
  Receipt Date: 20170120
  Transmission Date: 20170428
  Serious: No
  Sender: FDA-Public Use
  Company Number: US-ALKEM LABORATORIES LIMITED-US-ALKEM-2017-00004

PATIENT
  Sex: Female
  Weight: 45.35 kg

DRUGS (2)
  1. GABAPENTIN. [Suspect]
     Active Substance: GABAPENTIN
     Indication: FIBROMYALGIA
     Dosage: 1 DF, QD
     Route: 048
     Dates: start: 20161222, end: 20170102
  2. GABAPENTIN. [Suspect]
     Active Substance: GABAPENTIN
     Dosage: 1 DF, TID
     Route: 048
     Dates: start: 20161222, end: 20170102

REACTIONS (6)
  - Diarrhoea [Recovering/Resolving]
  - Nasal congestion [Recovering/Resolving]
  - Constipation [Recovering/Resolving]
  - Upper-airway cough syndrome [Recovering/Resolving]
  - Headache [Recovering/Resolving]
  - Skin disorder [Recovering/Resolving]
